FAERS Safety Report 20166886 (Version 1)
Quarter: 2021Q4

REPORT INFORMATION
  Report Type: Spontaneous
  Country: IN (occurrence: IN)
  Receive Date: 20211209
  Receipt Date: 20211209
  Transmission Date: 20220303
  Serious: Yes (Hospitalization)
  Sender: FDA-Public Use
  Company Number: IN-PERRIGO-21IN031766

PATIENT
  Age: 58 Year
  Sex: Male

DRUGS (1)
  1. MINOXIDIL [Suspect]
     Active Substance: MINOXIDIL
     Indication: Accidental exposure to product
     Dosage: APPROXIMATELY 10 ML, SINGLE
     Route: 048

REACTIONS (10)
  - Accidental exposure to product [Recovered/Resolved]
  - Toxicity to various agents [Recovered/Resolved]
  - Acute pulmonary oedema [Recovered/Resolved]
  - Acute kidney injury [Recovered/Resolved]
  - Tachycardia [Recovered/Resolved]
  - Hypotension [Recovering/Resolving]
  - Atrial fibrillation [Recovered/Resolved]
  - Bundle branch block right [Recovered/Resolved]
  - Hypoxia [Recovered/Resolved]
  - Metabolic acidosis [Recovered/Resolved]
